FAERS Safety Report 22026761 (Version 1)
Quarter: 2023Q1

REPORT INFORMATION
  Report Type: Spontaneous
  Country: ES (occurrence: ES)
  Receive Date: 20230223
  Receipt Date: 20230223
  Transmission Date: 20230418
  Serious: Yes (Hospitalization, Other)
  Sender: FDA-Public Use
  Company Number: ES-AEMPS-1332494

PATIENT
  Age: 68 Year
  Sex: Female

DRUGS (2)
  1. OLMESARTAN MEDOXOMIL [Interacting]
     Active Substance: OLMESARTAN MEDOXOMIL
     Indication: Hypertension
     Dosage: 20 MILLIGRAM, ONCE A DAY, SE REDUCE A 10 MG/D?A
     Route: 048
     Dates: start: 20221212, end: 20230205
  2. FUROSEMIDE [Interacting]
     Active Substance: FUROSEMIDE
     Indication: Oedema peripheral
     Dosage: 40 MG C/ 24H
     Route: 048
     Dates: start: 20230116, end: 20230205

REACTIONS (3)
  - Hypotension [Recovered/Resolved]
  - Prerenal failure [Recovered/Resolved]
  - Syncope [Recovered/Resolved]

NARRATIVE: CASE EVENT DATE: 20230126
